FAERS Safety Report 6427096-X (Version None)
Quarter: 2009Q4

REPORT INFORMATION
  Report Type: 
  Country: None (occurrence: None)
  Receive Date: 20091104
  Receipt Date: 20091023
  Transmission Date: 20100525
  Serious: Yes (Other)
  Sender: FDA-Public Use
  Company Number: FR-ELI_LILLY_AND_COMPANY-FR200910006143

PATIENT
  Sex: Female

DRUGS (1)
  1. CYMBALTA [Suspect]
     Route: 048

REACTIONS (2)
  - CARDIOVASCULAR DISORDER [None]
  - VARICOSE VEIN [None]
